FAERS Safety Report 16782485 (Version 3)
Quarter: 2019Q4

REPORT INFORMATION
  Report Type: Spontaneous
  Country: JP (occurrence: JP)
  Receive Date: 20190906
  Receipt Date: 20191004
  Transmission Date: 20200122
  Serious: Yes (Death, Life-Threatening, Hospitalization, Other)
  Sender: FDA-Public Use
  Company Number: JP-ASTRAZENECA-2019SF14296

PATIENT
  Age: 25368 Day
  Sex: Female
  Weight: 34 kg

DRUGS (2)
  1. TAGRISSO [Suspect]
     Active Substance: OSIMERTINIB
     Indication: NON-SMALL CELL LUNG CANCER
     Route: 048
     Dates: start: 20190307, end: 20190729
  2. OLOPATADINE HYDROCHLORIDE. [Concomitant]
     Active Substance: OLOPATADINE HYDROCHLORIDE
     Indication: PRURITUS
     Route: 048
     Dates: start: 20190311, end: 20190729

REACTIONS (6)
  - Inappropriate antidiuretic hormone secretion [Recovering/Resolving]
  - Interstitial lung disease [Fatal]
  - Hepatic cancer metastatic [Fatal]
  - Hypercapnia [Unknown]
  - Non-small cell lung cancer metastatic [Fatal]
  - Hyponatraemia [Unknown]

NARRATIVE: CASE EVENT DATE: 20190729
